FAERS Safety Report 5791767-9 (Version None)
Quarter: 2008Q2

REPORT INFORMATION
  Report Type: 
  Country: None (occurrence: None)
  Receive Date: 20080626
  Receipt Date: 20080424
  Transmission Date: 20081010
  Serious: No
  Sender: FDA-Public Use
  Company Number: A0714297A

PATIENT
  Weight: 73.2 kg

DRUGS (1)
  1. ALLI [Suspect]
     Indication: DRUG USE FOR UNKNOWN INDICATION

REACTIONS (12)
  - ANOREXIA [None]
  - CHANGE OF BOWEL HABIT [None]
  - DECREASED APPETITE [None]
  - DRUG INEFFECTIVE [None]
  - GASTROINTESTINAL DISORDER [None]
  - INCREASED APPETITE [None]
  - INFLUENZA [None]
  - INFREQUENT BOWEL MOVEMENTS [None]
  - MALAISE [None]
  - PYREXIA [None]
  - WEIGHT FLUCTUATION [None]
  - WEIGHT INCREASED [None]
